FAERS Safety Report 8152672-6 (Version None)
Quarter: 2012Q1

REPORT INFORMATION
  Report Type: 
  Country: None (occurrence: None)
  Receive Date: 20120221
  Receipt Date: 20120210
  Transmission Date: 20120608
  Serious: Yes (Other)
  Sender: FDA-Public Use
  Company Number: PHHY2012GB011921

PATIENT
  Age: 39 Year
  Sex: Female

DRUGS (2)
  1. ZOPICLONE [Concomitant]
     Dosage: 37.5 MG, QD
     Route: 048
  2. PROPRANOLOL [Suspect]
     Indication: ANXIETY
     Dosage: 80 MG, BID
     Route: 048
     Dates: start: 20120112, end: 20120126

REACTIONS (3)
  - FATIGUE [None]
  - PARAESTHESIA [None]
  - PALLOR [None]
